FAERS Safety Report 9178224 (Version 2)
Quarter: 2013Q1

REPORT INFORMATION
  Report Type: Spontaneous
  Country: US (occurrence: US)
  Receive Date: 20130321
  Receipt Date: 20130325
  Transmission Date: 20140127
  Serious: No
  Sender: FDA-Public Use
  Company Number: US-TEVA-392927USA

PATIENT
  Sex: Male

DRUGS (6)
  1. NUVIGIL [Suspect]
     Indication: SOMNOLENCE
  2. FELDENE [Concomitant]
     Indication: ARTHRITIS
  3. NORCO [Concomitant]
  4. BACLOFEN [Concomitant]
  5. VALIUM [Concomitant]
  6. ASPIRIN [Concomitant]

REACTIONS (5)
  - Somnambulism [Unknown]
  - Drug ineffective [Unknown]
  - Nausea [Unknown]
  - Abdominal pain upper [Unknown]
  - Gastroenteritis viral [Unknown]
